FAERS Safety Report 15413178 (Version 1)
Quarter: 2018Q3

REPORT INFORMATION
  Report Type: Spontaneous
  Country: US (occurrence: US)
  Receive Date: 20180921
  Receipt Date: 20180921
  Transmission Date: 20181010
  Serious: Yes (Other)
  Sender: FDA-Public Use
  Company Number: US-TARO-2018TAR00674

PATIENT
  Sex: Male

DRUGS (3)
  1. ENALAPRIL MALEATE TABLETS USP 20 MG [Suspect]
     Active Substance: ENALAPRIL MALEATE
     Indication: HYPERTENSION
     Dosage: 20 MG, 1X/DAY
     Route: 048
     Dates: start: 2016
  2. ENALAPRIL MALEATE TABLETS USP 20 MG [Suspect]
     Active Substance: ENALAPRIL MALEATE
     Dosage: 20 MG, 2X/DAY (ONCE IN THE MORNING AND ONCE IN THE EVENING)
     Route: 048
     Dates: end: 20180904
  3. BENAZEPRIL [Suspect]
     Active Substance: BENAZEPRIL HYDROCHLORIDE
     Dosage: 20 MG, 2X/DAY
     Dates: start: 201809

REACTIONS (6)
  - Feeling abnormal [Not Recovered/Not Resolved]
  - Blood pressure increased [Not Recovered/Not Resolved]
  - Ocular discomfort [Not Recovered/Not Resolved]
  - Drug ineffective [Not Recovered/Not Resolved]
  - Visual impairment [Not Recovered/Not Resolved]
  - Product storage error [Recovered/Resolved]

NARRATIVE: CASE EVENT DATE: 2018
